FAERS Safety Report 4346298-X (Version None)
Quarter: 2004Q2

REPORT INFORMATION
  Report Type: 
  Country: None (occurrence: None)
  Receive Date: 20040423
  Receipt Date: 20040423
  Transmission Date: 20050107
  Serious: Yes (Disabling)
  Sender: FDA-Public Use
  Company Number: None

PATIENT
  Age: 52 Year
  Sex: Female
  Weight: 63.5036 kg

DRUGS (1)
  1. AMOXICILLIN AND CLAVULANATE POTASSIUM [Suspect]
     Indication: ANIMAL BITE
     Dosage: 125 MG BID ORAL
     Route: 048
     Dates: start: 20040405

REACTIONS (3)
  - GASTROINTESTINAL PAIN [None]
  - IMPAIRED WORK ABILITY [None]
  - OESOPHAGEAL PAIN [None]
